FAERS Safety Report 8702378 (Version 3)
Quarter: 2012Q4

REPORT INFORMATION
  Report Type: 
  Country: US (occurrence: US)
  Receive Date: 20120803
  Receipt Date: 20121210
  Transmission Date: 20130627
  Serious: Yes (Hospitalization, Other)
  Sender: FDA-Public Use
  Company Number: US-ELI_LILLY_AND_COMPANY-US201207004887

PATIENT
  Age: 87 None
  Sex: Female

DRUGS (11)
  1. FORTEO [Suspect]
     Indication: OSTEOPOROSIS
     Dosage: 20 ug, qd
     Dates: start: 20120709, end: 20120720
  2. FORTEO [Suspect]
     Dosage: 20 ug, qd
  3. LIPITOR [Concomitant]
     Dosage: 25 mg, qd
  4. ALEVE [Concomitant]
     Dosage: UNK
  5. TYLENOL                                 /SCH/ [Concomitant]
     Dosage: UNK
  6. CALCIUM [Concomitant]
     Dosage: 600 mg, bid
  7. LOSARTIN [Concomitant]
     Dosage: UNK
  8. ALENDRONATE [Concomitant]
     Dosage: UNK
  9. BIOTIN [Concomitant]
     Dosage: UNK
  10. GLUCOSAMINE + CHONDROITIN [Concomitant]
     Dosage: UNK
  11. ASPIRIN [Concomitant]
     Dosage: 81 mg, qod

REACTIONS (19)
  - Syncope [Unknown]
  - Hypotension [Unknown]
  - Spinal fracture [Unknown]
  - Agitation [Unknown]
  - Injection site erythema [Recovering/Resolving]
  - Anxiety [Unknown]
  - Dizziness [Unknown]
  - Back injury [Unknown]
  - Pain [Unknown]
  - Limb discomfort [Unknown]
  - Discomfort [Unknown]
  - Pain in extremity [Unknown]
  - Skin haemorrhage [Unknown]
  - Drug dose omission [Unknown]
  - Mobility decreased [Unknown]
  - Fall [Unknown]
  - Pallor [Unknown]
  - Hyperhidrosis [Unknown]
  - Eye movement disorder [Unknown]
